FAERS Safety Report 7106231-4 (Version None)
Quarter: 2010Q4

REPORT INFORMATION
  Report Type: 
  Country: None (occurrence: None)
  Receive Date: 20101116
  Receipt Date: 20101103
  Transmission Date: 20110411
  Serious: Yes (Other)
  Sender: FDA-Public Use
  Company Number: CH-ELI_LILLY_AND_COMPANY-CH201011000963

PATIENT
  Age: 36 Year
  Sex: Female

DRUGS (1)
  1. FLUCTINE [Suspect]
     Indication: DEPRESSION
     Dosage: 10 MG, DAILY (1/D)

REACTIONS (3)
  - CAESAREAN SECTION [None]
  - DRUG EXPOSURE DURING PREGNANCY [None]
  - FOETAL MALPOSITION [None]
